FAERS Safety Report 15867688 (Version 1)
Quarter: 2019Q1

REPORT INFORMATION
  Report Type: Spontaneous
  Country: US (occurrence: US)
  Receive Date: 20190102
  Receipt Date: 20190102
  Transmission Date: 20190417
  Serious: No
  Sender: FDA-Public Use
  Company Number: None

PATIENT
  Age: 68 Year
  Sex: Female

DRUGS (1)
  1. IBRANCE [Suspect]
     Active Substance: PALBOCICLIB
     Indication: BREAST CANCER FEMALE
     Route: 048
     Dates: start: 20180426, end: 20181231

REACTIONS (3)
  - Pulmonary oedema [None]
  - Treatment failure [None]
  - Gastrointestinal oedema [None]

NARRATIVE: CASE EVENT DATE: 201810
